FAERS Safety Report 8807921 (Version 2)
Quarter: 2012Q4

REPORT INFORMATION
  Report Type: 
  Country: CN (occurrence: CN)
  Receive Date: 20120925
  Receipt Date: 20121214
  Transmission Date: 20130627
  Serious: Yes (Other)
  Sender: FDA-Public Use
  Company Number: PHHY2012CN082358

PATIENT
  Age: 34 Year
  Sex: Male

DRUGS (1)
  1. SEBIVO [Suspect]
     Indication: HEPATITIS B
     Dosage: 600 mg, QD
     Dates: start: 201005

REACTIONS (6)
  - Tuberculosis [Recovered/Resolved]
  - Nasopharyngitis [Recovered/Resolved]
  - Chest discomfort [Recovered/Resolved]
  - Extrasystoles [Unknown]
  - Heart rate increased [Recovering/Resolving]
  - White blood cell count decreased [Recovering/Resolving]
